FAERS Safety Report 25117028 (Version 1)
Quarter: 2025Q1

REPORT INFORMATION
  Report Type: Spontaneous
  Country: US (occurrence: US)
  Receive Date: 20250325
  Receipt Date: 20250325
  Transmission Date: 20250408
  Serious: No
  Sender: UNITED THERAPEUTICS
  Company Number: US-UNITED THERAPEUTICS-UNT-2025-009091

PATIENT

DRUGS (1)
  1. REMODULIN [Suspect]
     Active Substance: TREPROSTINIL
     Indication: Product used for unknown indication

REACTIONS (5)
  - Infusion site pruritus [Unknown]
  - Infusion site erythema [Unknown]
  - Infusion site pain [Unknown]
  - Headache [Unknown]
  - Patient dissatisfaction with treatment [Unknown]
